FAERS Safety Report 18350043 (Version 8)
Quarter: 2020Q4

REPORT INFORMATION
  Report Type: Report from Study
  Country: ES (occurrence: ES)
  Receive Date: 20201006
  Receipt Date: 20201125
  Transmission Date: 20210114
  Serious: Yes (Death, Hospitalization)
  Sender: FDA-Public Use
  Company Number: ES-PFIZER INC-2020372404

PATIENT
  Age: 71 Year
  Sex: Male
  Weight: 70 kg

DRUGS (6)
  1. CARBOPLATIN. [Suspect]
     Active Substance: CARBOPLATIN
     Indication: NON-SMALL CELL LUNG CANCER
     Dosage: UNK
     Route: 042
     Dates: start: 20200805, end: 20200902
  2. PEMETREXED. [Suspect]
     Active Substance: PEMETREXED
     Indication: NON-SMALL CELL LUNG CANCER
     Dosage: UNK
     Route: 042
     Dates: start: 20200805, end: 20200902
  3. AVELUMAB [Suspect]
     Active Substance: AVELUMAB
     Dosage: 710 MG, WEEKLY
     Route: 042
     Dates: end: 20200708
  4. AVELUMAB [Suspect]
     Active Substance: AVELUMAB
     Dosage: 710 MG, WEEKLY
     Route: 042
  5. AVELUMAB [Suspect]
     Active Substance: AVELUMAB
     Indication: NON-SMALL CELL LUNG CANCER
     Dosage: 710 MG, WEEKLY
     Route: 042
     Dates: start: 20171212
  6. AVELUMAB [Suspect]
     Active Substance: AVELUMAB
     Dosage: 710 MG, WEEKLY
     Route: 042

REACTIONS (1)
  - Septic shock [Fatal]

NARRATIVE: CASE EVENT DATE: 20200913
